FAERS Safety Report 6246009-7 (Version None)
Quarter: 2009Q2

REPORT INFORMATION
  Report Type: 
  Country: None (occurrence: None)
  Receive Date: 20090626
  Receipt Date: 20081024
  Transmission Date: 20091009
  Serious: No
  Sender: FDA-Public Use
  Company Number: A0753680A

PATIENT
  Age: 49 Year
  Sex: Female

DRUGS (8)
  1. IMITREX [Suspect]
     Indication: MIGRAINE
     Route: 048
     Dates: start: 19970101, end: 20080901
  2. IMITREX [Suspect]
     Dosage: 4MG PER DAY
     Route: 058
     Dates: start: 19950101
  3. PAXIL [Suspect]
     Indication: MIGRAINE PROPHYLAXIS
     Dosage: 20MG PER DAY
     Route: 048
     Dates: start: 20080801
  4. CLONIDINE [Concomitant]
  5. PAVLOX [Concomitant]
  6. IRON [Concomitant]
  7. SKELAXIN [Concomitant]
  8. IBUPROFEN [Concomitant]

REACTIONS (6)
  - BLOOD PRESSURE INCREASED [None]
  - CARDIAC DISORDER [None]
  - DRUG ADMINISTRATION ERROR [None]
  - DRUG INEFFECTIVE [None]
  - NAUSEA [None]
  - OVERDOSE [None]
